FAERS Safety Report 18460582 (Version 8)
Quarter: 2022Q1

REPORT INFORMATION
  Report Type: Report from Study
  Country: US (occurrence: US)
  Receive Date: 20201103
  Receipt Date: 20220222
  Transmission Date: 20220423
  Serious: Yes (Other)
  Sender: FDA-Public Use
  Company Number: US-ABBVIE-20K-163-3631761-00

PATIENT
  Age: 54 Year
  Sex: Female
  Weight: 79.450 kg

DRUGS (9)
  1. HUMIRA [Suspect]
     Active Substance: ADALIMUMAB
     Indication: Psoriatic arthropathy
     Dosage: CITRATE FREE
     Route: 058
     Dates: start: 2019
  2. HUMIRA [Suspect]
     Active Substance: ADALIMUMAB
     Indication: Psoriasis
     Dosage: CITRATE FREE
     Route: 058
     Dates: start: 20200924
  3. HUMIRA [Suspect]
     Active Substance: ADALIMUMAB
     Indication: Rheumatoid arthritis
     Dosage: CITRATE FREE
     Route: 058
  4. HUMIRA [Suspect]
     Active Substance: ADALIMUMAB
     Dosage: CITRATE FREE
     Route: 058
  5. PREDNISONE [Suspect]
     Active Substance: PREDNISONE
     Indication: Product used for unknown indication
     Route: 065
  6. MODERNA COVID-19 VACCINE [Suspect]
     Active Substance: ELASOMERAN
     Indication: COVID-19 immunisation
     Dosage: MODERNA
     Route: 030
     Dates: start: 20210308, end: 20210308
  7. MODERNA COVID-19 VACCINE [Suspect]
     Active Substance: ELASOMERAN
     Dosage: MODERNA
     Route: 030
     Dates: start: 202105, end: 202105
  8. MODERNA COVID-19 VACCINE [Suspect]
     Active Substance: ELASOMERAN
     Dosage: MODERNA
     Route: 030
     Dates: start: 202202, end: 202202
  9. DUPIXENT [Concomitant]
     Active Substance: DUPILUMAB
     Indication: Product used for unknown indication

REACTIONS (36)
  - Systemic lupus erythematosus [Not Recovered/Not Resolved]
  - Weight increased [Unknown]
  - Fatigue [Recovered/Resolved]
  - Autoimmune disorder [Not Recovered/Not Resolved]
  - Foot deformity [Not Recovered/Not Resolved]
  - Vaccination site nodule [Recovered/Resolved]
  - Somnolence [Recovered/Resolved]
  - Lacrimation increased [Recovering/Resolving]
  - Nodule [Not Recovered/Not Resolved]
  - Eczema [Not Recovered/Not Resolved]
  - Bell^s palsy [Not Recovered/Not Resolved]
  - Hypoaesthesia [Not Recovered/Not Resolved]
  - Bone disorder [Not Recovered/Not Resolved]
  - Pain [Not Recovered/Not Resolved]
  - Influenza [Recovering/Resolving]
  - Sinusitis [Recovering/Resolving]
  - Paraesthesia [Not Recovered/Not Resolved]
  - Vaccination site pain [Recovered/Resolved]
  - Neck pain [Not Recovered/Not Resolved]
  - Back pain [Not Recovered/Not Resolved]
  - Vaccination site pain [Recovered/Resolved]
  - Vaccination site nodule [Recovered/Resolved]
  - Vaccination site pain [Recovered/Resolved]
  - Sluggishness [Recovered/Resolved]
  - Psoriasis [Recovering/Resolving]
  - Skin bacterial infection [Recovering/Resolving]
  - Allergic cough [Not Recovered/Not Resolved]
  - Seasonal allergy [Not Recovered/Not Resolved]
  - Lacrimation increased [Not Recovered/Not Resolved]
  - Rhinorrhoea [Not Recovered/Not Resolved]
  - Muscular dystrophy [Not Recovered/Not Resolved]
  - Spondylitis [Not Recovered/Not Resolved]
  - Tremor [Not Recovered/Not Resolved]
  - Skin ulcer [Not Recovered/Not Resolved]
  - Fatigue [Not Recovered/Not Resolved]
  - Sensory disturbance [Not Recovered/Not Resolved]

NARRATIVE: CASE EVENT DATE: 20201201
